FAERS Safety Report 10480596 (Version 1)
Quarter: 2014Q3

REPORT INFORMATION
  Report Type: Spontaneous
  Country: US (occurrence: None)
  Receive Date: 20140926
  Receipt Date: 20140926
  Transmission Date: 20150326
  Serious: Yes (Hospitalization)
  Sender: FDA-Public Use
  Company Number: None

PATIENT
  Age: 79 Year
  Sex: Male
  Weight: 64.6 kg

DRUGS (2)
  1. WARFARIN [Suspect]
     Active Substance: WARFARIN
     Route: 048
     Dates: start: 20130327
  2. CEPHALEXIN. [Suspect]
     Active Substance: CEPHALEXIN
     Route: 048
     Dates: start: 20140810, end: 20140812

REACTIONS (2)
  - International normalised ratio increased [None]
  - Drug interaction [None]

NARRATIVE: CASE EVENT DATE: 20140812
